FAERS Safety Report 7357126-2 (Version None)
Quarter: 2011Q1

REPORT INFORMATION
  Report Type: 
  Country: None (occurrence: None)
  Receive Date: 20110308
  Receipt Date: 20110223
  Transmission Date: 20110831
  Serious: Yes (Other)
  Sender: FDA-Public Use
  Company Number: 1000019093

PATIENT
  Age: 30 Year
  Sex: Female
  Weight: 65 kg

DRUGS (5)
  1. THOMAPYRIN (ACETYLSALICYLIC ACID, PARACETAMOL) (TABLETS) [Suspect]
     Dosage: 1 DOSAGE FORMS, ONCE, ORAL
     Route: 048
     Dates: start: 20110223, end: 20110223
  2. INSIDON (OPIPRAMOL HYDROCHLORIDE) (DROPS FOR ORAL USE) [Suspect]
     Dosage: ONCE, ORAL
     Route: 048
     Dates: start: 20110223, end: 20110223
  3. RIVOTRIL (CLONAZEPAM) (2 MILLIGRAM, TABLETS) [Suspect]
     Dosage: ONCE, ORAL
     Route: 048
     Dates: start: 20110223, end: 20110223
  4. ESCITALOPRAM OXALATE [Suspect]
     Dosage: 15 MG, ONCE, ORAL
     Route: 048
     Dates: start: 20110223, end: 20110223
  5. ALCOHOL (ETHANOL) [Suspect]
     Dosage: ONCE, ORAL
     Route: 048
     Dates: start: 20110223, end: 20110223

REACTIONS (3)
  - AGITATION [None]
  - HYPERVENTILATION [None]
  - SUICIDE ATTEMPT [None]
